FAERS Safety Report 15012348 (Version 2)
Quarter: 2018Q2

REPORT INFORMATION
  Report Type: Spontaneous
  Country: US (occurrence: US)
  Receive Date: 20180614
  Receipt Date: 20180615
  Transmission Date: 20180711
  Serious: Yes (Hospitalization)
  Sender: FDA-Public Use
  Company Number: US-PFIZER INC-2018241462

PATIENT
  Age: 58 Year
  Sex: Female
  Weight: 74.39 kg

DRUGS (4)
  1. GABAPENTIN. [Suspect]
     Active Substance: GABAPENTIN
     Indication: ARTHRITIS
     Dosage: 300 MG, 2X/DAY(2 TIMES DAILY)
     Route: 048
  2. BACLOFEN. [Concomitant]
     Active Substance: BACLOFEN
     Indication: MUSCLE SPASMS
     Dosage: 20 MG, 2X/DAY
     Route: 048
  3. LOSARTAN POTASSIUM. [Concomitant]
     Active Substance: LOSARTAN POTASSIUM
     Indication: BLOOD PRESSURE ABNORMAL
     Dosage: 50 MG, 1X/DAY(1 TIME DAILY AT NIGHT)
     Route: 048
  4. GABAPENTIN. [Suspect]
     Active Substance: GABAPENTIN
     Indication: FIBROMYALGIA

REACTIONS (5)
  - Burning sensation [Unknown]
  - Drug ineffective for unapproved indication [Unknown]
  - Cerebrovascular accident [Unknown]
  - Dysarthria [Unknown]
  - Pain [Unknown]

NARRATIVE: CASE EVENT DATE: 20180603
